FAERS Safety Report 9804220 (Version 1)
Quarter: 2014Q1

REPORT INFORMATION
  Report Type: Spontaneous
  Country: ES (occurrence: None)
  Receive Date: 20140103
  Receipt Date: 20140103
  Transmission Date: 20141002
  Serious: Yes (Hospitalization)
  Sender: FDA-Public Use
  Company Number: 2013PL000221

PATIENT
  Age: 47 Year
  Sex: Male

DRUGS (2)
  1. AZATHIOPRINE (AZATHIOPRINE) [Suspect]
  2. AZATHIOPRINE (AZATHIOPRINE) [Suspect]
     Indication: CROHN^S DISEASE

REACTIONS (11)
  - Nodular regenerative hyperplasia [None]
  - Liver disorder [None]
  - Retroperitoneal abscess [None]
  - Thrombocytopenia [None]
  - Cholestasis [None]
  - Cell death [None]
  - Hepatosplenomegaly [None]
  - Ascites [None]
  - Portal hypertension [None]
  - Varices oesophageal [None]
  - Bile duct stone [None]
